FAERS Safety Report 6724489-8 (Version None)
Quarter: 2010Q2

REPORT INFORMATION
  Report Type: 
  Country: None (occurrence: None)
  Receive Date: 20100513
  Receipt Date: 20100430
  Transmission Date: 20101027
  Serious: Yes (Hospitalization, Other)
  Sender: FDA-Public Use
  Company Number: AU-ELI_LILLY_AND_COMPANY-AU201004002214

PATIENT
  Sex: Male

DRUGS (6)
  1. CYMBALTA [Suspect]
     Indication: DEPRESSION
     Dosage: 60 MG, UNK
  2. BUDESONIDE [Concomitant]
     Indication: ASTHMA
     Dosage: 2 PUFFS, 2/D
     Route: 055
  3. VITAMIN D [Concomitant]
     Dosage: 1 D/F, DAILY (1/D)
  4. LEVOTHYROXINE SODIUM [Concomitant]
     Dosage: 3 D/F, DAILY (1/D)
  5. WARFARIN SODIUM [Concomitant]
     Dosage: 3 MG, UNK
     Dates: start: 20100331
  6. NEXIUM [Concomitant]

REACTIONS (7)
  - ACUTE MYOCARDIAL INFARCTION [None]
  - ATRIAL FIBRILLATION [None]
  - BILE DUCT OBSTRUCTION [None]
  - CHRONIC OBSTRUCTIVE PULMONARY DISEASE [None]
  - HEPATITIS [None]
  - HYPOKALAEMIA [None]
  - INTERNATIONAL NORMALISED RATIO INCREASED [None]
